FAERS Safety Report 7572008-9 (Version None)
Quarter: 2011Q2

REPORT INFORMATION
  Report Type: 
  Country: None (occurrence: None)
  Receive Date: 20110624
  Receipt Date: 20110608
  Transmission Date: 20111010
  Serious: No
  Sender: FDA-Public Use
  Company Number: US-B.I. PHARMACEUTICALS,INC./RIDGEFIELD-2011-BP-15001BP

PATIENT
  Age: 49 Year
  Sex: Male

DRUGS (5)
  1. MULTAQ [Concomitant]
     Indication: ATRIAL FIBRILLATION
     Dosage: 800 MG
     Route: 048
  2. WHEY PROTEIN [Concomitant]
     Indication: MUSCLE MASS
     Route: 061
  3. TWO ANABOLIC STEROIDS [Concomitant]
     Indication: MUSCLE MASS
  4. TESTOSTERONE [Concomitant]
     Indication: SUBSTANCE USE
     Route: 061
  5. PRADAXA [Suspect]
     Indication: ATRIAL FIBRILLATION
     Dosage: 300 MG
     Route: 048

REACTIONS (2)
  - HEADACHE [None]
  - MUSCULOSKELETAL STIFFNESS [None]
